FAERS Safety Report 5469930-6 (Version None)
Quarter: 2007Q3

REPORT INFORMATION
  Report Type: 
  Country: None (occurrence: None)
  Receive Date: 20070927
  Receipt Date: 20070924
  Transmission Date: 20080115
  Serious: Yes (Hospitalization, Disabling)
  Sender: FDA-Public Use
  Company Number: HQWYE070507SEP07

PATIENT
  Sex: Male

DRUGS (7)
  1. CORDAREX [Suspect]
     Indication: TACHYARRHYTHMIA
     Route: 048
     Dates: end: 20070828
  2. ASS ^CT-ARZNEIMITTEL^ [Concomitant]
     Route: 048
  3. SIMVASTATIN [Concomitant]
     Route: 048
  4. CIBACEN [Concomitant]
     Route: 048
  5. AMLODIPINE [Concomitant]
     Route: 048
  6. ALDACTONE [Concomitant]
     Route: 048
  7. BISOPROLOL [Concomitant]
     Route: 048

REACTIONS (3)
  - DERMATITIS EXFOLIATIVE [None]
  - PHOTOSENSITIVITY REACTION [None]
  - SKIN INFECTION [None]
